FAERS Safety Report 15209298 (Version 1)
Quarter: 2018Q3

REPORT INFORMATION
  Report Type: Report from Study
  Country: SE (occurrence: SE)
  Receive Date: 20180727
  Receipt Date: 20180727
  Transmission Date: 20181010
  Serious: Yes (Hospitalization)
  Sender: FDA-Public Use
  Company Number: SE-PFIZER INC-2018296362

PATIENT
  Age: 57 Year
  Sex: Male

DRUGS (14)
  1. LOPERAMIDE [Concomitant]
     Active Substance: LOPERAMIDE
     Dosage: UNK UNK, CYCLIC
     Route: 041
     Dates: start: 20151001
  2. FLUOROURACIL 5 FU [Suspect]
     Active Substance: FLUOROURACIL
     Dosage: 750 MG, CYCLIC
     Route: 040
     Dates: start: 20160719, end: 20160719
  3. ZALTRAP [Suspect]
     Active Substance: ZIV-AFLIBERCEPT
     Dosage: 500 MG, CYCLIC
     Route: 041
     Dates: start: 20160719, end: 20160719
  4. OXAZEPAM. [Concomitant]
     Active Substance: OXAZEPAM
     Dosage: UNK
     Route: 065
     Dates: start: 20150521
  5. FLUOROURACIL 5 FU [Suspect]
     Active Substance: FLUOROURACIL
     Dosage: 5550 MG, CYCLIC
     Route: 041
     Dates: start: 20160719, end: 20160719
  6. IRINOTECAN HCL [Suspect]
     Active Substance: IRINOTECAN HYDROCHLORIDE
     Indication: COLORECTAL CANCER METASTATIC
     Dosage: 395 MG, CYCLIC
     Route: 041
     Dates: start: 20150929, end: 20150929
  7. IRINOTECAN HCL [Suspect]
     Active Substance: IRINOTECAN HYDROCHLORIDE
     Dosage: 350 MG, CYCLIC
     Route: 041
     Dates: start: 20160719, end: 20160719
  8. FOLINIC ACID [Suspect]
     Active Substance: LEUCOVORIN
     Indication: COLORECTAL CANCER METASTATIC
     Dosage: 45 MG, CYCLIC
     Route: 041
     Dates: start: 20150929, end: 20150929
  9. NOVOMIX [Concomitant]
     Active Substance: INSULIN ASPART
     Dosage: UNK UNK, CYCLIC
     Route: 041
     Dates: start: 20160114
  10. FLUOROURACIL 5 FU [Suspect]
     Active Substance: FLUOROURACIL
     Indication: COLORECTAL CANCER METASTATIC
     Dosage: 6150 MG, CYCLIC
     Route: 041
     Dates: start: 20150929, end: 20150929
  11. FLUOROURACIL 5 FU [Suspect]
     Active Substance: FLUOROURACIL
     Dosage: 850 MG, CYCLIC
     Route: 040
     Dates: start: 20150929, end: 20150929
  12. ZALTRAP [Suspect]
     Active Substance: ZIV-AFLIBERCEPT
     Indication: COLORECTAL CANCER METASTATIC
     Dosage: 520 MG, CYCLIC
     Route: 041
     Dates: start: 20150929, end: 20150929
  13. METOCLOPRAMIDE. [Concomitant]
     Active Substance: METOCLOPRAMIDE
     Dosage: UNK UNK, CYCLIC
     Route: 041
     Dates: start: 20150929
  14. FOLINIC ACID [Suspect]
     Active Substance: LEUCOVORIN
     Dosage: 45 MG, CYCLIC
     Dates: start: 20160719, end: 20160719

REACTIONS (4)
  - Non-cardiac chest pain [Recovered/Resolved]
  - Diarrhoea [Recovered/Resolved]
  - Influenza like illness [Recovered/Resolved]
  - Anxiety [Not Recovered/Not Resolved]

NARRATIVE: CASE EVENT DATE: 20160725
